FAERS Safety Report 5921638-6 (Version None)
Quarter: 2008Q4

REPORT INFORMATION
  Report Type: 
  Country: None (occurrence: None)
  Receive Date: 20081016
  Receipt Date: 20081016
  Transmission Date: 20090506
  Serious: Yes (Hospitalization)
  Sender: FDA-Public Use
  Company Number: None

PATIENT
  Age: 13 Year
  Sex: Female
  Weight: 50 kg

DRUGS (1)
  1. DOXYCYCLINE [Suspect]
     Indication: ACNE
     Dosage: 100MG DAILY AT BEDTIME PO
     Route: 048
     Dates: start: 20081004, end: 20081011

REACTIONS (6)
  - BACK PAIN [None]
  - DYSPHAGIA [None]
  - EROSIVE OESOPHAGITIS [None]
  - OESOPHAGEAL DISORDER [None]
  - OESOPHAGITIS [None]
  - OROPHARYNGEAL PAIN [None]
